FAERS Safety Report 16044248 (Version 2)
Quarter: 2019Q4

REPORT INFORMATION
  Report Type: Report from Study
  Country: HK (occurrence: HK)
  Receive Date: 20190306
  Receipt Date: 20191114
  Transmission Date: 20200122
  Serious: Yes (Hospitalization)
  Sender: FDA-Public Use
  Company Number: PHHY2019HK047043

PATIENT
  Age: 64 Year
  Sex: Male
  Weight: 48 kg

DRUGS (2)
  1. REVOLADE [Suspect]
     Active Substance: ELTROMBOPAG
     Indication: IMMUNE THROMBOCYTOPENIC PURPURA
     Dosage: 75 MG ON ODD DAYS AND 25 MG ON EVEN DAYS
     Route: 048
     Dates: start: 20190110, end: 20190117
  2. REVOLADE [Suspect]
     Active Substance: ELTROMBOPAG
     Dosage: 75 MG ON ODD DAYS AND 25 MG ON EVEN DAYS
     Route: 048
     Dates: start: 20190202

REACTIONS (9)
  - Confusional state [Recovered/Resolved]
  - Metabolic acidosis [Recovered/Resolved]
  - Malaise [Recovered/Resolved]
  - Hypoglycaemia [Recovered/Resolved]
  - Lactic acidosis [Recovered/Resolved]
  - Hypotension [Recovered/Resolved]
  - Acute kidney injury [Recovered/Resolved]
  - Klebsiella test positive [Recovered/Resolved]
  - Corynebacterium test positive [Recovered/Resolved]

NARRATIVE: CASE EVENT DATE: 20190117
